FAERS Safety Report 8251962-6 (Version None)
Quarter: 2012Q2

REPORT INFORMATION
  Report Type: 
  Country: None (occurrence: None)
  Receive Date: 20120402
  Receipt Date: 20120326
  Transmission Date: 20120825
  Serious: Yes (Hospitalization)
  Sender: FDA-Public Use
  Company Number: PHHY2012IT026259

PATIENT
  Sex: Male

DRUGS (9)
  1. AMIODARONE HCL [Suspect]
     Indication: ATRIAL FIBRILLATION
     Dosage: 4 DF, UNK
     Dates: start: 20111025, end: 20111025
  2. DEXTROSE [Concomitant]
     Dosage: 250 ML, UNK
  3. LANOXIN [Concomitant]
     Dosage: 1 DF, UNK
  4. LEVOTHYROXINE SODIUM [Concomitant]
  5. CLONAZEPAM [Concomitant]
  6. ENOXAPARIN SODIUM [Concomitant]
     Dosage: 1 DF, UNK
  7. DIFFUMAL 24 [Concomitant]
  8. TRIAZOLAM [Concomitant]
  9. DIAZEPAM [Concomitant]

REACTIONS (2)
  - BLOOD PRESSURE INCREASED [None]
  - ORAL DISCOMFORT [None]
